FAERS Safety Report 10946627 (Version 1)
Quarter: 2015Q1

REPORT INFORMATION
  Report Type: Spontaneous
  Country: US (occurrence: None)
  Receive Date: 20150212
  Receipt Date: 20150212
  Transmission Date: 20150721
  Serious: Yes (Other)
  Sender: FDA-Public Use
  Company Number: TPA2011A06443

PATIENT
  Age: 52 Year
  Sex: Male
  Weight: 115.67 kg

DRUGS (5)
  1. ULORIC [Suspect]
     Active Substance: FEBUXOSTAT
     Indication: GOUT
     Dosage: 2-3 WEEKS?40 MG, 1 IN 1 D, PER ORAL
     Route: 048
  2. UNKNOWN HYPERTENSIVE MEDICATION (ANTIHYPERTENSIVES) [Concomitant]
  3. PRADAXA (DIRECT THROMBIN INHIBITORS) [Concomitant]
  4. MULTAQ (DRONEDARONE) [Concomitant]
  5. UNKNOWN NIACIN-BASED CHOLESTEROL MEDICATION (CHOLESTEROL- AND TRIGLYCERIDE REDUCERS) [Concomitant]

REACTIONS (3)
  - Condition aggravated [None]
  - Gout [None]
  - Atrial fibrillation [None]

NARRATIVE: CASE EVENT DATE: 2011
